FAERS Safety Report 10042905 (Version 1)
Quarter: 2014Q1

REPORT INFORMATION
  Report Type: Spontaneous
  Country: GB (occurrence: GB)
  Receive Date: 20140328
  Receipt Date: 20140328
  Transmission Date: 20141002
  Serious: Yes (Hospitalization)
  Sender: FDA-Public Use
  Company Number: 2014SP000178

PATIENT
  Age: 55 Year
  Sex: Female
  Weight: 56 kg

DRUGS (27)
  1. DICLOFENAC SODIUM [Suspect]
     Indication: PRODUCT USED FOR UNKNOWN INDICATION
     Dates: start: 20130711, end: 20130719
  2. DEXAMETHASONE [Suspect]
     Indication: PRODUCT USED FOR UNKNOWN INDICATION
     Dates: start: 20130711, end: 20130719
  3. AFINITOR [Suspect]
     Indication: BREAST CANCER METASTATIC
     Route: 048
     Dates: start: 20130307, end: 20130710
  4. EXEMESTANE [Suspect]
     Indication: BREAST CANCER METASTATIC
     Route: 048
     Dates: start: 20130307, end: 20130710
  5. EXEMESTANE [Suspect]
     Indication: BREAST CANCER METASTATIC
     Route: 048
     Dates: start: 201203
  6. CYCLIZINE [Concomitant]
     Indication: ANTIEMETIC SUPPORTIVE CARE
     Route: 048
     Dates: start: 20130313
  7. FENTANYL [Concomitant]
     Indication: ANALGESIC THERAPY
     Dates: start: 20130607
  8. FENTANYL [Concomitant]
     Indication: PRODUCT USED FOR UNKNOWN INDICATION
     Dates: start: 20130607
  9. FENTANYL [Concomitant]
     Indication: ANALGESIC THERAPY
     Dates: start: 20130723
  10. FENTANYL [Concomitant]
     Indication: PRODUCT USED FOR UNKNOWN INDICATION
     Dates: start: 20130723
  11. OMEPRAZOLE [Concomitant]
     Indication: PROPHYLAXIS
     Route: 048
     Dates: start: 20130605
  12. OMEPRAZOLE [Concomitant]
     Indication: PRODUCT USED FOR UNKNOWN INDICATION
     Route: 048
     Dates: start: 20130605
  13. OMEPRAZOLE [Concomitant]
     Indication: PROPHYLAXIS
     Route: 042
     Dates: start: 20130719
  14. OMEPRAZOLE [Concomitant]
     Indication: PRODUCT USED FOR UNKNOWN INDICATION
     Route: 042
     Dates: start: 20130719
  15. OMEPRAZOLE [Concomitant]
     Indication: PROPHYLAXIS
  16. OMEPRAZOLE [Concomitant]
     Indication: PRODUCT USED FOR UNKNOWN INDICATION
  17. ORAMORPH [Concomitant]
     Indication: ANALGESIC THERAPY
     Dates: start: 20130313
  18. PARACETAMOL [Concomitant]
     Indication: ANALGESIC THERAPY
     Dates: start: 20130513
  19. PARACETAMOL [Concomitant]
     Indication: PRODUCT USED FOR UNKNOWN INDICATION
     Dates: start: 20130513
  20. PARACETAMOL [Concomitant]
     Indication: ANALGESIC THERAPY
     Dates: start: 20130719
  21. PARACETAMOL [Concomitant]
     Indication: PRODUCT USED FOR UNKNOWN INDICATION
     Dates: start: 20130719
  22. PREGABALIN [Concomitant]
     Indication: NEURALGIA
     Route: 048
     Dates: start: 20130717
  23. PREGABALIN [Concomitant]
     Indication: PRODUCT USED FOR UNKNOWN INDICATION
     Route: 048
     Dates: start: 20130717
  24. PREGABALIN [Concomitant]
     Indication: NEURALGIA
     Route: 048
     Dates: start: 20130719
  25. PREGABALIN [Concomitant]
     Indication: PRODUCT USED FOR UNKNOWN INDICATION
     Route: 048
     Dates: start: 20130719
  26. VOLTAROL /00372304/ [Concomitant]
     Indication: ANALGESIC THERAPY
     Route: 048
  27. ZOPICLONE [Concomitant]
     Indication: INSOMNIA
     Route: 048
     Dates: start: 20130408

REACTIONS (7)
  - Colitis [Not Recovered/Not Resolved]
  - Nausea [Unknown]
  - Vomiting [Unknown]
  - Diarrhoea [Recovered/Resolved with Sequelae]
  - Gastric ulcer [Recovering/Resolving]
  - Rectal haemorrhage [Recovered/Resolved with Sequelae]
  - Anaemia [Unknown]
